FAERS Safety Report 8620196-5 (Version None)
Quarter: 2012Q3

REPORT INFORMATION
  Report Type: 
  Country: None (occurrence: None)
  Receive Date: 20120824
  Receipt Date: 20120821
  Transmission Date: 20120928
  Serious: Yes (Death, Life-Threatening, Other)
  Sender: FDA-Public Use
  Company Number: PHHY2012FR072457

PATIENT
  Sex: Female

DRUGS (13)
  1. ZOMETA [Suspect]
     Indication: HYPERCALCAEMIA
     Dosage: 4 MG, IN 15 MIN
     Route: 042
     Dates: start: 20120719
  2. CYMBALTA [Suspect]
     Dosage: 60 MG, QD
     Dates: end: 20120726
  3. LERCANIDIPINE [Suspect]
     Dosage: 10 MG, QD
     Dates: end: 20120726
  4. ASPIRIN [Suspect]
     Dosage: 75 MG, UNK
  5. DURAGESIC-100 [Suspect]
     Dosage: 50 UG, DAILY
     Dates: end: 20120726
  6. PLAVIX [Suspect]
     Dosage: 75 MG, QD
     Dates: end: 20120726
  7. LYRICA [Suspect]
     Dosage: 75 MG, BID
     Dates: end: 20120726
  8. ATORVASTATIN [Suspect]
     Dosage: 10 MG, QD
  9. ACETAMINOPHEN [Suspect]
     Dosage: 1 MG, UNK
     Dates: end: 20120726
  10. NEXIUM [Suspect]
     Dosage: 20 MG, QD
     Dates: end: 20120726
  11. BISOPROLOL FUMARATE [Suspect]
     Dosage: 3.75 MG, DAILY (2.5 MG IN THE MORNING AND 1.25 MG IN THE EVENING)
     Dates: end: 20120727
  12. RAMIPRIL [Suspect]
     Dosage: 10 MG, QD
     Dates: end: 20120726
  13. NITROGLYCERIN [Suspect]
     Dosage: 5 MG, DAILY
     Dates: end: 20120727

REACTIONS (7)
  - RENAL FAILURE ACUTE [None]
  - CONFUSIONAL STATE [None]
  - AGITATION [None]
  - ACUTE PULMONARY OEDEMA [None]
  - NEPHROLITHIASIS [None]
  - DYSPNOEA [None]
  - HYPERCALCAEMIA [None]
